FAERS Safety Report 15802793 (Version 1)
Quarter: 2019Q1

REPORT INFORMATION
  Report Type: Report from Study
  Country: BR (occurrence: BR)
  Receive Date: 20190109
  Receipt Date: 20190109
  Transmission Date: 20190417
  Serious: Yes (Other)
  Sender: FDA-Public Use
  Company Number: PHHY2019BR001357

PATIENT
  Age: 72 Year
  Sex: Male
  Weight: 83 kg

DRUGS (3)
  1. ACLASTA [Suspect]
     Active Substance: ZOLEDRONIC ACID
     Indication: OSTEOPOROSIS
     Dosage: 1 DF, Q12MO
     Route: 042
     Dates: start: 2017, end: 2017
  2. CALCIUM [Suspect]
     Active Substance: CALCIUM
     Indication: OSTEOPOROSIS
     Dosage: UNK
     Route: 065
  3. ACLASTA [Suspect]
     Active Substance: ZOLEDRONIC ACID
     Dosage: 1 DF, Q12MO
     Route: 042
     Dates: start: 20180323

REACTIONS (7)
  - Labyrinthitis [Recovered/Resolved]
  - Malaise [Recovered/Resolved]
  - Renal haemorrhage [Unknown]
  - Renal pain [Unknown]
  - Renal disorder [Unknown]
  - Nephrolithiasis [Unknown]
  - Mass [Unknown]

NARRATIVE: CASE EVENT DATE: 201711
